FAERS Safety Report 10795364 (Version 1)
Quarter: 2015Q1

REPORT INFORMATION
  Report Type: Spontaneous
  Country: US (occurrence: US)
  Receive Date: 20150214
  Receipt Date: 20150214
  Transmission Date: 20150721
  Serious: No
  Sender: FDA-Public Use
  Company Number: US-GLAXOSMITHKLINE-A1072801A

PATIENT

DRUGS (2)
  1. VENTOLIN [Suspect]
     Active Substance: ALBUTEROL SULFATE
     Indication: ASTHMA
     Route: 055
     Dates: start: 201401
  2. LORATADINE. [Concomitant]
     Active Substance: LORATADINE

REACTIONS (6)
  - Wheezing [Unknown]
  - Nasopharyngitis [Unknown]
  - Palpitations [Recovering/Resolving]
  - Heart rate increased [Unknown]
  - Asthma [Unknown]
  - Off label use [Unknown]

NARRATIVE: CASE EVENT DATE: 201401
